FAERS Safety Report 5427124-4 (Version None)
Quarter: 2007Q3

REPORT INFORMATION
  Report Type: 
  Country: None (occurrence: None)
  Receive Date: 20070828
  Receipt Date: 20070816
  Transmission Date: 20080115
  Serious: Yes (Other)
  Sender: FDA-Public Use
  Company Number: PHFR2007GB02472

PATIENT
  Age: 12 Year
  Sex: Female

DRUGS (3)
  1. TOBRAMYCIN [Suspect]
     Dosage: 4.08 MG/KG, BID
     Route: 042
  2. IBUPROFEN [Suspect]
     Route: 065
  3. POLYMYXIN [Suspect]
     Route: 065

REACTIONS (2)
  - BLOOD CREATININE INCREASED [None]
  - RENAL FAILURE ACUTE [None]
